FAERS Safety Report 6830157-4 (Version None)
Quarter: 2010Q3

REPORT INFORMATION
  Report Type: 
  Country: None (occurrence: None)
  Receive Date: 20100711
  Receipt Date: 20100528
  Transmission Date: 20110219
  Serious: No
  Sender: FDA-Public Use
  Company Number: US-ALLERGAN-1007020US

PATIENT
  Sex: Female

DRUGS (5)
  1. LATISSE [Suspect]
     Indication: GROWTH OF EYELASHES
     Dosage: 1 GTT, QHS
     Route: 061
     Dates: end: 20100501
  2. ZOCOR [Concomitant]
     Indication: HYPERCHOLESTEROLAEMIA
     Dosage: UNK
  3. FISH OIL [Concomitant]
     Dosage: UNK
  4. OSCAL                              /00108001/ [Concomitant]
     Dosage: UNK
  5. VITAMIN A [Concomitant]

REACTIONS (1)
  - HAIR GROWTH ABNORMAL [None]
